FAERS Safety Report 6836524-7 (Version None)
Quarter: 2010Q3

REPORT INFORMATION
  Report Type: 
  Country: None (occurrence: None)
  Receive Date: 20100708
  Receipt Date: 20100624
  Transmission Date: 20110219
  Serious: Yes (Hospitalization)
  Sender: FDA-Public Use
  Company Number: RB-12261-2010

PATIENT
  Age: 28 Year
  Sex: Female

DRUGS (2)
  1. SUBOXONE [Suspect]
     Indication: PRODUCT USED FOR UNKNOWN INDICATION
     Dosage: DOSING DETAILS UNKNOWN SUBLINGUAL
     Route: 060
  2. XANAX [Suspect]
     Indication: PRODUCT USED FOR UNKNOWN INDICATION
     Dosage: DOSING DETAILS UNKNOWN

REACTIONS (4)
  - CONVULSION [None]
  - DRUG EXPOSURE DURING PREGNANCY [None]
  - DRUG WITHDRAWAL SYNDROME [None]
  - PREGNANCY [None]
